FAERS Safety Report 9860138 (Version 2)
Quarter: 2014Q1

REPORT INFORMATION
  Report Type: Other
  Country: IT (occurrence: IT)
  Receive Date: 20140201
  Receipt Date: 20140218
  Transmission Date: 20141002
  Serious: Yes (Hospitalization, Other)
  Sender: FDA-Public Use
  Company Number: IT-SUN PHARMACEUTICAL INDUSTRIES LTD-2014SUN00210

PATIENT
  Age: 73 Year
  Sex: Male
  Weight: 77 kg

DRUGS (8)
  1. OXALIPLATINO SUN 5 MG/ML, CONCENTRATO PER SOLUZIONE PER INFUSIONE [Suspect]
     Indication: COLORECTAL CANCER
     Dosage: 130 MG/M2, CYCLIC
     Route: 042
     Dates: start: 20130613, end: 20130704
  2. DEXAMETHASONE PHOSPHATE [Concomitant]
     Indication: PROPHYLAXIS OF NAUSEA AND VOMITING
     Dosage: 20 MG, UNK
     Route: 042
     Dates: start: 20130613, end: 20130704
  3. ZOFRAN [Concomitant]
     Indication: PROPHYLAXIS OF NAUSEA AND VOMITING
     Dosage: 8 MG, UNK
     Route: 042
     Dates: start: 20130613, end: 20130704
  4. XELODA [Concomitant]
     Indication: COLORECTAL CANCER
     Dosage: 1000 MG/M2, UNK
     Route: 048
     Dates: start: 20130613, end: 20130704
  5. TATIONIL [Concomitant]
     Indication: COLORECTAL CANCER
     Dosage: 20000 MG/M2, UNK
     Route: 042
     Dates: start: 20130613, end: 20130704
  6. TRIATEC [Concomitant]
     Indication: HYPERTENSION
     Dosage: 1 DF, UNK
     Route: 048
     Dates: start: 20130615, end: 20131204
  7. SERETIDE [Concomitant]
     Indication: ASTHMA
     Dosage: UNK
     Route: 055
     Dates: start: 20070618, end: 20131204
  8. OMNIC [Concomitant]
     Indication: BENIGN PROSTATIC HYPERPLASIA
     Dosage: 1 DF, UNK
     Route: 048
     Dates: start: 20070618, end: 20131204

REACTIONS (6)
  - Blister [Recovered/Resolved]
  - Abdominal pain [Recovered/Resolved]
  - Hyperhidrosis [Recovered/Resolved]
  - Hypotension [Recovered/Resolved]
  - Nausea [Recovered/Resolved]
  - Paraesthesia [Recovered/Resolved]
